FAERS Safety Report 10078982 (Version 2)
Quarter: 2014Q2

REPORT INFORMATION
  Report Type: Spontaneous
  Country: US (occurrence: US)
  Receive Date: 20140415
  Receipt Date: 20140610
  Transmission Date: 20141212
  Serious: Yes (Other)
  Sender: FDA-Public Use
  Company Number: US-PFIZER INC-2014103599

PATIENT
  Age: 63 Year
  Sex: Male

DRUGS (4)
  1. ZYVOX [Suspect]
     Indication: HIP ARTHROPLASTY
     Dosage: 600 MG, 2X/DAY
     Dates: start: 20140129, end: 20140312
  2. ZYVOX [Suspect]
     Indication: SEPSIS
  3. DAPTOMYCIN [Concomitant]
     Dosage: 400 MG, DAILY
     Route: 042
     Dates: start: 20140107, end: 20140128
  4. LISINOPRIL [Concomitant]
     Indication: RENAL FAILURE ACUTE
     Dosage: 20 MG, DAILY
     Dates: end: 20140129

REACTIONS (6)
  - Renal failure acute [Recovered/Resolved]
  - Corynebacterium infection [Unknown]
  - Anaemia [Recovered/Resolved]
  - Tooth discolouration [Not Recovered/Not Resolved]
  - Dizziness [Unknown]
  - Dyspnoea [Recovered/Resolved]
